FAERS Safety Report 4863424-4 (Version None)
Quarter: 2005Q4

REPORT INFORMATION
  Report Type: 
  Country: None (occurrence: None)
  Receive Date: 20051222
  Receipt Date: 20050106
  Transmission Date: 20060501
  Serious: No
  Sender: FDA-Public Use
  Company Number: US-GLAXOSMITHKLINE-A0539661A

PATIENT
  Age: 52 Year
  Sex: Male

DRUGS (3)
  1. FLONASE [Suspect]
     Dosage: 4SPR PER DAY
     Route: 045
     Dates: start: 20041119
  2. ANTIINFLAMMATORY [Concomitant]
  3. ACULAR [Concomitant]

REACTIONS (2)
  - DRUG INEFFECTIVE [None]
  - PHARMACEUTICAL PRODUCT COMPLAINT [None]
